FAERS Safety Report 19670011 (Version 1)
Quarter: 2021Q3

REPORT INFORMATION
  Report Type: Spontaneous
  Country: FR (occurrence: FR)
  Receive Date: 20210806
  Receipt Date: 20210806
  Transmission Date: 20211014
  Serious: Yes (Other)
  Sender: FDA-Public Use
  Company Number: FR-GILEAD-2021-0540544

PATIENT
  Age: 50 Year
  Sex: Female

DRUGS (3)
  1. TENOFOVIR DISOPROXIL FUMARATE. [Suspect]
     Active Substance: TENOFOVIR DISOPROXIL FUMARATE
     Indication: HEPATITIS D
     Dosage: 300 MG, QD
     Route: 065
  2. PEG INF [Suspect]
     Active Substance: PEGINTERFERON ALFA-2A
     Indication: PRODUCT USED FOR UNKNOWN INDICATION
     Dosage: 180 UG PER WEEK
     Route: 065
  3. BULEVIRTIDE [Suspect]
     Active Substance: BULEVIRTIDE
     Indication: HEPATITIS D
     Dosage: 2 MG, QD
     Route: 058
     Dates: start: 202006

REACTIONS (2)
  - Pancytopenia [Unknown]
  - Asthenia [Unknown]
